FAERS Safety Report 8041775-2 (Version None)
Quarter: 2012Q1

REPORT INFORMATION
  Report Type: 
  Country: None (occurrence: None)
  Receive Date: 20120112
  Receipt Date: 20120106
  Transmission Date: 20120608
  Serious: Yes (Other)
  Sender: FDA-Public Use
  Company Number: US-JNJFOC-20120102479

PATIENT
  Age: 6 Decade
  Sex: Male
  Weight: 42.18 kg

DRUGS (6)
  1. ARIXTRA [Concomitant]
  2. METOPROLOL SUCCINATE [Concomitant]
  3. PAIN MEDICATION NOS [Concomitant]
  4. CELEXA [Concomitant]
  5. XARELTO [Suspect]
     Indication: ILL-DEFINED DISORDER
     Route: 048
     Dates: start: 20110101
  6. DEPAKOTE [Concomitant]

REACTIONS (2)
  - STAPHYLOCOCCAL INFECTION [None]
  - HIP ARTHROPLASTY [None]
